FAERS Safety Report 9901446 (Version 1)
Quarter: 2014Q1

REPORT INFORMATION
  Report Type: Spontaneous
  Country: JP (occurrence: JP)
  Receive Date: 20140217
  Receipt Date: 20140217
  Transmission Date: 20141002
  Serious: Yes (Other)
  Sender: FDA-Public Use
  Company Number: JP-NOVOPROD-400278

PATIENT
  Sex: Female

DRUGS (2)
  1. SUREPOST [Suspect]
     Indication: DIABETES MELLITUS
     Dosage: 0.75 MG, QD
     Route: 048
  2. DIPEPTIDYL PEPTIDASE 4 (DPP-4) INHIBITORS [Concomitant]
     Dosage: UNK
     Route: 065

REACTIONS (2)
  - Liver disorder [Recovered/Resolved]
  - Decreased appetite [Recovered/Resolved]
